FAERS Safety Report 6227412-8 (Version None)
Quarter: 2009Q2

REPORT INFORMATION
  Report Type: 
  Country: None (occurrence: None)
  Receive Date: 20090610
  Receipt Date: 20090610
  Transmission Date: 20091009
  Serious: Yes (Other)
  Sender: FDA-Public Use
  Company Number: None

PATIENT
  Age: 53 Year
  Sex: Female
  Weight: 48.5349 kg

DRUGS (1)
  1. CELEBREX [Suspect]

REACTIONS (2)
  - DIZZINESS [None]
  - VOMITING [None]
